FAERS Safety Report 8601997-6 (Version None)
Quarter: 2012Q3

REPORT INFORMATION
  Report Type: 
  Country: None (occurrence: None)
  Receive Date: 20120817
  Receipt Date: 20120813
  Transmission Date: 20120928
  Serious: Yes (Other)
  Sender: FDA-Public Use
  Company Number: NL-PFIZER INC-2012167665

PATIENT
  Age: 66 Year
  Sex: Female

DRUGS (1)
  1. LATANOPROST [Suspect]
     Dosage: UNK

REACTIONS (1)
  - CATARACT [None]
